FAERS Safety Report 15374595 (Version 1)
Quarter: 2018Q3

REPORT INFORMATION
  Report Type: Spontaneous
  Country: JP (occurrence: JP)
  Receive Date: 20180912
  Receipt Date: 20180912
  Transmission Date: 20181010
  Serious: Yes (Hospitalization, Other)
  Sender: FDA-Public Use
  Company Number: JP-PFIZER INC-2018363020

PATIENT
  Age: 73 Year
  Sex: Male

DRUGS (3)
  1. CISPLATIN. [Suspect]
     Active Substance: CISPLATIN
     Indication: SMALL CELL LUNG CANCER
     Dosage: UNK (96.12 MG/BODY)
     Dates: start: 20180612, end: 20180612
  2. CAMPTO [Suspect]
     Active Substance: IRINOTECAN
     Dosage: UNK, ONCE A DAY
     Route: 041
     Dates: start: 20180710, end: 20180710
  3. CAMPTO [Suspect]
     Active Substance: IRINOTECAN
     Indication: SMALL CELL LUNG CANCER
     Dosage: UNK, ONCE A DAY
     Route: 041
     Dates: start: 20180612, end: 20180612

REACTIONS (4)
  - Seizure [Unknown]
  - Inappropriate antidiuretic hormone secretion [Recovered/Resolved]
  - Pneumonia aspiration [Unknown]
  - Fall [Unknown]

NARRATIVE: CASE EVENT DATE: 20180614
